FAERS Safety Report 22108085 (Version 1)
Quarter: 2023Q1

REPORT INFORMATION
  Report Type: Spontaneous
  Country: NL (occurrence: NL)
  Receive Date: 20230317
  Receipt Date: 20230317
  Transmission Date: 20230418
  Serious: Yes (Hospitalization)
  Sender: FDA-Public Use
  Company Number: None

PATIENT
  Sex: Male
  Weight: 90 kg

DRUGS (1)
  1. AMOXICILLIN [Suspect]
     Active Substance: AMOXICILLIN
     Indication: Pneumonia
     Dosage: 500 MG, Q12H, (2 X PER DAG 1 STUK)
     Route: 065
     Dates: start: 20221122, end: 20221125

REACTIONS (2)
  - Skin lesion [Unknown]
  - Stevens-Johnson syndrome [Unknown]
